FAERS Safety Report 8810793 (Version 2)
Quarter: 2012Q4

REPORT INFORMATION
  Report Type: 
  Country: GB (occurrence: GB)
  Receive Date: 20120927
  Receipt Date: 20121127
  Transmission Date: 20130627
  Serious: Yes (Other)
  Sender: FDA-Public Use
  Company Number: GB-JNJFOC-20120810384

PATIENT
  Sex: Female

DRUGS (7)
  1. DUROGESIC DTRANS [Suspect]
     Indication: PAIN
     Route: 062
  2. DUROGESIC DTRANS [Suspect]
     Indication: PAIN
     Route: 062
  3. DUROGESIC DTRANS [Suspect]
     Indication: PAIN
     Route: 062
  4. DUROGESIC DTRANS [Suspect]
     Indication: PAIN
     Route: 062
  5. LIDOCAINE [Concomitant]
     Route: 065
  6. MORPHINE [Concomitant]
     Route: 065
  7. INSULIN [Concomitant]
     Indication: TYPE 1 DIABETES MELLITUS
     Route: 065

REACTIONS (6)
  - Diabetic neuropathy [Unknown]
  - Nerve injury [Unknown]
  - Drug ineffective [Unknown]
  - Product quality issue [Unknown]
  - Wrong technique in drug usage process [Unknown]
  - Application site burn [Unknown]
